FAERS Safety Report 5424665-0 (Version None)
Quarter: 2007Q3

REPORT INFORMATION
  Report Type: 
  Country: None (occurrence: None)
  Receive Date: 20070824
  Receipt Date: 20070816
  Transmission Date: 20080115
  Serious: Yes (Other)
  Sender: FDA-Public Use
  Company Number: PHBS2007JP13793

PATIENT
  Age: 46 Year
  Sex: Male

DRUGS (5)
  1. NEORAL [Suspect]
     Indication: PUSTULAR PSORIASIS
     Route: 048
  2. RIMATIL [Concomitant]
  3. PREDONINE [Concomitant]
     Dosage: 20 MG/D
     Dates: end: 20070812
  4. PREDONINE [Concomitant]
     Dosage: 15 MG/D
     Dates: start: 20070813
  5. ALLELOCK [Concomitant]

REACTIONS (2)
  - C-REACTIVE PROTEIN INCREASED [None]
  - WHITE BLOOD CELL COUNT INCREASED [None]
